FAERS Safety Report 5541923-X (Version None)
Quarter: 2007Q4

REPORT INFORMATION
  Report Type: 
  Country: None (occurrence: None)
  Receive Date: 20071210
  Receipt Date: 20051211
  Transmission Date: 20080405
  Serious: Yes (Death)
  Sender: FDA-Public Use
  Company Number: IR-ROCHE-533787

PATIENT
  Sex: Male

DRUGS (1)
  1. PEGASYS [Suspect]
     Dosage: FORM PRE FILLED SYRINGE
     Route: 065

REACTIONS (1)
  - BRAIN ABSCESS [None]
